FAERS Safety Report 13331015 (Version 1)
Quarter: 2017Q1

REPORT INFORMATION
  Report Type: Report from Study
  Country: US (occurrence: US)
  Receive Date: 20170313
  Receipt Date: 20170313
  Transmission Date: 20170428
  Serious: Yes (Disabling, Other)
  Sender: FDA-Public Use
  Company Number: US-009507513-1703USA005167

PATIENT
  Age: 9 Decade
  Sex: Female

DRUGS (2)
  1. ATORVASTATIN [Suspect]
     Active Substance: ATORVASTATIN
  2. MK-0653A STUDY [Suspect]
     Active Substance: EZETIMIBE\SIMVASTATIN

REACTIONS (4)
  - Cognitive disorder [Recovering/Resolving]
  - Confusional state [None]
  - Disorientation [None]
  - Amnesia [None]
